FAERS Safety Report 7990991-4 (Version None)
Quarter: 2011Q4

REPORT INFORMATION
  Report Type: 
  Country: None (occurrence: None)
  Receive Date: 20111219
  Receipt Date: 20111215
  Transmission Date: 20120403
  Serious: Yes (Other)
  Sender: FDA-Public Use
  Company Number: CN-BRACCO-000251

PATIENT
  Sex: Male

DRUGS (6)
  1. NIFEDIPINE [Concomitant]
  2. ALL OTHER THERAPEUTIC PRODUCTS [Concomitant]
  3. IOPAMIDOL [Suspect]
     Indication: HYPERTENSION
     Route: 042
     Dates: start: 20111125, end: 20111125
  4. LOSARTAN POTASSIUM [Concomitant]
  5. IOPAMIDOL [Suspect]
     Indication: COMPUTERISED TOMOGRAM
     Route: 042
     Dates: start: 20111125, end: 20111125
  6. METOPROLOL SUCCINATE [Concomitant]

REACTIONS (1)
  - BLOOD CREATININE INCREASED [None]
